FAERS Safety Report 5871395-7 (Version None)
Quarter: 2008Q3

REPORT INFORMATION
  Report Type: 
  Country: None (occurrence: None)
  Receive Date: 20080905
  Receipt Date: 20080414
  Transmission Date: 20090109
  Serious: No
  Sender: FDA-Public Use
  Company Number: A0633222A

PATIENT
  Age: 72 Year
  Sex: Female

DRUGS (17)
  1. REQUIP [Suspect]
     Indication: RESTLESS LEGS SYNDROME
     Route: 048
  2. HYDROCHLOROTHIAZIDE [Concomitant]
     Route: 048
  3. PREMARIN [Concomitant]
  4. ENALAPRIL MALEATE [Concomitant]
  5. NASACORT [Concomitant]
  6. VITAMIN B-12 [Concomitant]
     Route: 048
  7. VITAMIN D [Concomitant]
     Route: 048
  8. CARBIDOPA [Concomitant]
     Route: 048
  9. VITAMIN D [Concomitant]
     Route: 048
  10. HYDROCHLOROTHIAZIDE [Concomitant]
     Route: 048
  11. LOVAZA [Concomitant]
     Route: 048
  12. PAROXETINE HCL [Concomitant]
     Route: 048
  13. DETROL [Concomitant]
     Route: 048
  14. BENADRYL [Concomitant]
     Route: 065
  15. PRILOSEC [Concomitant]
     Route: 048
  16. ASPIRIN [Concomitant]
     Route: 048
  17. UNSPECIFIED MEDICATION [Concomitant]

REACTIONS (2)
  - DIZZINESS [None]
  - HYPERSOMNIA [None]
